FAERS Safety Report 22980519 (Version 2)
Quarter: 2024Q3

REPORT INFORMATION
  Report Type: Spontaneous
  Country: IN (occurrence: IN)
  Receive Date: 20230925
  Receipt Date: 20240813
  Transmission Date: 20241016
  Serious: Yes (Other)
  Sender: PFIZER
  Company Number: IN-PFIZER INC-2021395803

PATIENT
  Age: 55 Year
  Sex: Female

DRUGS (4)
  1. PALBOCICLIB [Suspect]
     Active Substance: PALBOCICLIB
     Indication: Breast cancer metastatic
     Dosage: 125 MG, CYCLIC (ONCE DAILY, 21 DAYS AND 7 DAYS OFF)
     Route: 048
     Dates: start: 20210312, end: 20210330
  2. PALBOCICLIB [Suspect]
     Active Substance: PALBOCICLIB
     Dosage: 125 MG, CYCLIC (D1 + D21, FU  7 DAYS OFF)
  3. LETROZOLE [Concomitant]
     Active Substance: LETROZOLE
     Dosage: UNK
  4. CALCIUM GLUCONATE [Concomitant]
     Active Substance: CALCIUM GLUCONATE
     Dosage: UNK (SACHET)

REACTIONS (4)
  - Blood glucose increased [Unknown]
  - Rash [Recovered/Resolved]
  - COVID-19 [Unknown]
  - Off label use [Unknown]

NARRATIVE: CASE EVENT DATE: 20210301
